FAERS Safety Report 15297753 (Version 1)
Quarter: 2018Q3

REPORT INFORMATION
  Report Type: Report from Study
  Country: ES (occurrence: ES)
  Receive Date: 20180820
  Receipt Date: 20180820
  Transmission Date: 20181010
  Serious: Yes (Hospitalization)
  Sender: FDA-Public Use
  Company Number: ES-PFIZER INC-2018328814

PATIENT
  Age: 19 Month
  Sex: Male
  Weight: 10.8 kg

DRUGS (8)
  1. METHYLPREDNISOLONE. [Concomitant]
     Active Substance: METHYLPREDNISOLONE
     Indication: ACUTE LYMPHOCYTIC LEUKAEMIA
     Dosage: 15 MG, 1X/DAY
     Route: 042
     Dates: start: 20170811, end: 20170912
  2. ONCASPAR [Suspect]
     Active Substance: PEGASPARGASE
     Indication: ACUTE LYMPHOCYTIC LEUKAEMIA
     Dosage: 510 IU, 1X/DAY
     Route: 030
     Dates: start: 20170822, end: 20170822
  3. VINCRISTINE SULFATE. [Suspect]
     Active Substance: VINCRISTINE SULFATE
     Indication: ACUTE LYMPHOCYTIC LEUKAEMIA
     Dosage: 0.75 MG, WEEKLY
     Route: 042
     Dates: start: 20170818, end: 20170901
  4. AMBISOME [Concomitant]
     Active Substance: AMPHOTERICIN B
     Dosage: 24 MG, 1X/DAY
     Route: 055
     Dates: start: 20170816
  5. FLUCONAZOLE. [Concomitant]
     Active Substance: FLUCONAZOLE
     Dosage: 65 MG, 1X/DAY
     Route: 048
     Dates: start: 20170811
  6. ACICLOVIR [Concomitant]
     Active Substance: ACYCLOVIR
     Indication: PROPHYLAXIS
     Dosage: 125 MG, 3X/DAY (EVERY 8 HOURS)
     Route: 048
     Dates: start: 20170811, end: 20170904
  7. SEPTRIN PAEDIATRIC [Concomitant]
     Active Substance: SULFAMETHOXAZOLE\TRIMETHOPRIM
     Indication: PROPHYLAXIS
     Dosage: 1.5 ML, 3X/DAY (EVERY 8 HOURS)
     Route: 048
     Dates: start: 20170811
  8. DAUNORUBICIN HCL [Suspect]
     Active Substance: DAUNORUBICIN HYDROCHLORIDE
     Indication: ACUTE LYMPHOCYTIC LEUKAEMIA
     Dosage: 15.4 MG, 1X/DAY
     Route: 042
     Dates: start: 20170818, end: 20170901

REACTIONS (3)
  - Posterior reversible encephalopathy syndrome [Recovered/Resolved]
  - Neuropathy peripheral [Recovered/Resolved]
  - Hyponatraemia [Recovered/Resolved]

NARRATIVE: CASE EVENT DATE: 20170904
